FAERS Safety Report 8191439-X (Version None)
Quarter: 2012Q1

REPORT INFORMATION
  Report Type: 
  Country: None (occurrence: None)
  Receive Date: 20120307
  Receipt Date: 20110926
  Transmission Date: 20120608
  Serious: Yes (Hospitalization, Other)
  Sender: FDA-Public Use
  Company Number: US-ASTRAZENECA-2011SE57448

PATIENT
  Age: 58 Year
  Sex: Male

DRUGS (1)
  1. ZOLMITRIPTAN [Suspect]
     Indication: MIGRAINE
     Route: 048

REACTIONS (1)
  - ACUTE MYOCARDIAL INFARCTION [None]
